FAERS Safety Report 18801878 (Version 1)
Quarter: 2021Q1

REPORT INFORMATION
  Report Type: Spontaneous
  Country: US (occurrence: US)
  Receive Date: 20210128
  Receipt Date: 20210128
  Transmission Date: 20210419
  Serious: No
  Sender: FDA-Public Use
  Company Number: US-DRREDDYS-USA/USA/21/0131040

PATIENT
  Age: 17 Year
  Sex: Male

DRUGS (1)
  1. ZENATANE [Suspect]
     Active Substance: ISOTRETINOIN
     Indication: PRODUCT USED FOR UNKNOWN INDICATION
     Dosage: RMA ISSUE DATE10/1/2020 1:12:16, 10/27/2020 1:34:04 PM AND 12/1/2020 1:16:20 PM
     Route: 048

REACTIONS (1)
  - Therapy cessation [Unknown]
